FAERS Safety Report 20469568 (Version 1)
Quarter: 2022Q1

REPORT INFORMATION
  Report Type: Report from Study
  Country: US (occurrence: US)
  Receive Date: 20220214
  Receipt Date: 20220214
  Transmission Date: 20220423
  Serious: No
  Sender: FDA-Public Use
  Company Number: US-PHARMACOVIGILANCE-US-KAD-21-00106

PATIENT
  Sex: Male

DRUGS (2)
  1. REZUROCK [Suspect]
     Active Substance: BELUMOSUDIL
     Indication: Graft versus host disease
     Dosage: 200 MILLIGRAM,EARLY MORNING WITH FOOD
     Route: 048
     Dates: start: 20211028
  2. REZUROCK [Suspect]
     Active Substance: BELUMOSUDIL
     Indication: Graft versus host disease in lung

REACTIONS (6)
  - Joint stiffness [Unknown]
  - Fatigue [Unknown]
  - Myalgia [Unknown]
  - Pain [Unknown]
  - Gastrointestinal pain [Recovered/Resolved]
  - Rash [Unknown]
